FAERS Safety Report 8114327-3 (Version None)
Quarter: 2012Q1

REPORT INFORMATION
  Report Type: 
  Country: None (occurrence: None)
  Receive Date: 20120206
  Receipt Date: 20120126
  Transmission Date: 20120608
  Serious: No
  Sender: FDA-Public Use
  Company Number: US-BIOGENIDEC-2011BI047036

PATIENT
  Sex: Female

DRUGS (3)
  1. AVONEX [Concomitant]
     Indication: MULTIPLE SCLEROSIS
     Route: 030
     Dates: start: 20080601
  2. TYSABRI [Suspect]
     Indication: MULTIPLE SCLEROSIS
     Route: 042
     Dates: start: 20080725, end: 20110228
  3. TYSABRI [Suspect]
     Route: 042
     Dates: start: 20111017

REACTIONS (6)
  - COGNITIVE DISORDER [None]
  - NUCLEAR MAGNETIC RESONANCE IMAGING ABNORMAL [None]
  - ASTHENIA [None]
  - MULTIPLE SCLEROSIS RELAPSE [None]
  - URINARY RETENTION [None]
  - CYSTITIS [None]
